FAERS Safety Report 5564349-1 (Version None)
Quarter: 2007Q4

REPORT INFORMATION
  Report Type: 
  Country: None (occurrence: None)
  Receive Date: 20071214
  Receipt Date: 20071214
  Transmission Date: 20080405
  Serious: Yes (Death, Hospitalization)
  Sender: FDA-Public Use
  Company Number: None

PATIENT
  Sex: Male
  Weight: 61 kg

DRUGS (3)
  1. CYTARABINE [Suspect]
     Dosage: 1260 MG
     Dates: end: 20071112
  2. DAUNORUBICIN HCL [Suspect]
     Dosage: 480 MG
     Dates: end: 20071108
  3. ETOPOSIDE [Suspect]
     Dosage: 540 MG
     Dates: end: 20071108

REACTIONS (9)
  - ACUTE MYELOID LEUKAEMIA [None]
  - ATRIAL FIBRILLATION [None]
  - BONE MARROW FAILURE [None]
  - LEUKAEMIA RECURRENT [None]
  - LUNG INFILTRATION [None]
  - PERICARDIAL EFFUSION [None]
  - PLEURAL EFFUSION [None]
  - RESPIRATORY FAILURE [None]
  - SEPSIS [None]
